FAERS Safety Report 4602387-3 (Version None)
Quarter: 2005Q1

REPORT INFORMATION
  Report Type: 
  Country: None (occurrence: None)
  Receive Date: 20050309
  Receipt Date: 20050225
  Transmission Date: 20050727
  Serious: Yes (Death, Hospitalization)
  Sender: FDA-Public Use
  Company Number: GT-JNJFOC-20050300120

PATIENT
  Age: 9 Year
  Sex: Female
  Weight: 21 kg

DRUGS (4)
  1. REMICADE [Suspect]
     Route: 042
  2. METHOTREXATE [Concomitant]
     Route: 049
  3. CALCORT [Concomitant]
     Route: 049
  4. DICLOFENAC [Concomitant]
     Route: 049

REACTIONS (5)
  - CONVULSION [None]
  - DISSEMINATED TUBERCULOSIS [None]
  - HISTIOCYTOSIS HAEMATOPHAGIC [None]
  - MULTI-ORGAN FAILURE [None]
  - URINARY TRACT INFECTION [None]
